FAERS Safety Report 5831361-4 (Version None)
Quarter: 2008Q3

REPORT INFORMATION
  Report Type: 
  Country: None (occurrence: None)
  Receive Date: 20080801
  Receipt Date: 20080509
  Transmission Date: 20090109
  Serious: No
  Sender: FDA-Public Use
  Company Number: US-BOEHRINGER INGELHEIM GMBH, GERMANY-2008-BP-07347BP

PATIENT
  Sex: Female

DRUGS (7)
  1. SPIRIVA [Suspect]
     Indication: CHRONIC OBSTRUCTIVE PULMONARY DISEASE
     Route: 055
     Dates: start: 20080401
  2. ACTOS [Concomitant]
     Indication: DIABETES MELLITUS
  3. METFORMIN HCL [Concomitant]
     Indication: DIABETES MELLITUS
  4. PLAVIX [Concomitant]
  5. RANITIDINE HCL [Concomitant]
  6. SIMVASTATIN [Concomitant]
     Indication: BLOOD CHOLESTEROL INCREASED
  7. SYMBICORT [Concomitant]

REACTIONS (3)
  - EYE DISCHARGE [None]
  - EYE PAIN [None]
  - LACRIMATION INCREASED [None]
